FAERS Safety Report 13056346 (Version 1)
Quarter: 2016Q4

REPORT INFORMATION
  Report Type: Other
  Country: None (occurrence: US)
  Receive Date: 20161222
  Receipt Date: 20161222
  Transmission Date: 20170207
  Serious: Yes (Hospitalization, Other)
  Sender: FDA-Public Use
  Company Number: US-GUTHY-RENKER LLC-1061212

PATIENT
  Age: 78 Year
  Sex: Female

DRUGS (2)
  1. OXYGEN. [Concomitant]
     Active Substance: OXYGEN
  2. IT COSMETICS BYE BYE FOUNDATION WITH SPF 50+ [Suspect]
     Active Substance: TITANIUM DIOXIDE\ZINC OXIDE
     Indication: PROPHYLAXIS AGAINST SOLAR RADIATION
     Route: 061
     Dates: start: 20161107, end: 20161201

REACTIONS (4)
  - Skin mass [None]
  - Dysphagia [None]
  - Swelling face [Unknown]
  - Lacrimation increased [None]

NARRATIVE: CASE EVENT DATE: 20161201
